FAERS Safety Report 9422097 (Version 1)
Quarter: 2013Q3

REPORT INFORMATION
  Report Type: Spontaneous
  Country: US (occurrence: US)
  Receive Date: 20130726
  Receipt Date: 20130726
  Transmission Date: 20140515
  Serious: No
  Sender: FDA-Public Use
  Company Number: US-009507513-1307USA013893

PATIENT
  Age: 35 Year
  Sex: Male

DRUGS (6)
  1. SAPHRIS [Suspect]
     Indication: BIPOLAR DISORDER
     Dosage: 5 MG, QD
     Route: 060
     Dates: start: 20130606, end: 20130614
  2. ANTABUS [Concomitant]
     Dosage: UNK
  3. PYRIDOXINE [Concomitant]
     Dosage: UNK
  4. TEMAZEPAM [Concomitant]
     Dosage: UNK
  5. CLONAZEPAM [Concomitant]
     Dosage: UNK
  6. LITHIUM [Concomitant]
     Dosage: UNK

REACTIONS (1)
  - Enuresis [Recovered/Resolved]
